FAERS Safety Report 10228888 (Version 2)
Quarter: 2014Q2

REPORT INFORMATION
  Report Type: Report from Study
  Country: US (occurrence: US)
  Receive Date: 20140610
  Receipt Date: 20140610
  Transmission Date: 20141212
  Serious: Yes (Death, Congenital Anomaly)
  Sender: FDA-Public Use
  Company Number: US-B.I. PHARMACEUTICALS,INC./RIDGEFIELD-2007-BP-17331BP

PATIENT
  Age: 0 Day
  Sex: Female
  Weight: 1.11 kg

DRUGS (3)
  1. VIRAMUNE [Suspect]
     Indication: EXPOSURE DURING PREGNANCY
     Route: 064
     Dates: start: 200702
  2. SUSTIVA [Suspect]
     Indication: EXPOSURE DURING PREGNANCY
     Route: 064
     Dates: end: 200702
  3. TRUVADA [Suspect]
     Indication: EXPOSURE DURING PREGNANCY
     Route: 064
     Dates: start: 20070201

REACTIONS (4)
  - Multiple congenital abnormalities [Fatal]
  - Dandy-Walker syndrome [Fatal]
  - Single umbilical artery [Fatal]
  - Low birth weight baby [Fatal]
